FAERS Safety Report 15092717 (Version 1)
Quarter: 2018Q2

REPORT INFORMATION
  Report Type: Spontaneous
  Country: DE (occurrence: DE)
  Receive Date: 20180629
  Receipt Date: 20180629
  Transmission Date: 20180711
  Serious: Yes (Hospitalization, Other)
  Sender: FDA-Public Use
  Company Number: DE-JNJFOC-20180630840

PATIENT
  Age: 78 Year
  Sex: Male

DRUGS (18)
  1. RISPERDAL [Suspect]
     Active Substance: RISPERIDONE
     Indication: PRODUCT USED FOR UNKNOWN INDICATION
     Route: 048
     Dates: start: 20180316, end: 20180319
  2. BISOPROLOL [Concomitant]
     Active Substance: BISOPROLOL
     Route: 048
     Dates: start: 20180314
  3. NOVALGIN [Concomitant]
     Route: 065
     Dates: start: 20180402, end: 20180404
  4. SIMVASTATIN. [Concomitant]
     Active Substance: SIMVASTATIN
     Route: 048
     Dates: start: 20180314
  5. RAMIPRIL. [Concomitant]
     Active Substance: RAMIPRIL
     Route: 048
     Dates: start: 20180314
  6. RISPERDAL [Suspect]
     Active Substance: RISPERIDONE
     Indication: PRODUCT USED FOR UNKNOWN INDICATION
     Route: 048
     Dates: start: 20180320, end: 20180331
  7. NOVALGIN [Concomitant]
     Route: 065
     Dates: start: 20180319, end: 20180401
  8. OXAZEPAM. [Concomitant]
     Active Substance: OXAZEPAM
     Dosage: DOSE: 10
     Route: 065
     Dates: start: 20180318, end: 20180327
  9. OXAZEPAM. [Concomitant]
     Active Substance: OXAZEPAM
     Dosage: DOSE: 7.5-5
     Route: 065
     Dates: start: 20180328, end: 20180403
  10. NOVALGIN [Concomitant]
     Route: 065
     Dates: start: 20180314, end: 20180318
  11. TOREM [Concomitant]
     Active Substance: TORSEMIDE
     Route: 048
     Dates: start: 20180314
  12. RISPERDAL [Suspect]
     Active Substance: RISPERIDONE
     Indication: PRODUCT USED FOR UNKNOWN INDICATION
     Route: 048
     Dates: start: 20180314, end: 20180314
  13. RISPERDAL [Suspect]
     Active Substance: RISPERIDONE
     Indication: PRODUCT USED FOR UNKNOWN INDICATION
     Route: 048
     Dates: start: 20180315, end: 20180315
  14. ASPIRIN. [Concomitant]
     Active Substance: ASPIRIN
     Route: 048
     Dates: start: 20180314
  15. AMLODIPINE [Concomitant]
     Active Substance: AMLODIPINE BESYLATE
     Route: 048
     Dates: start: 20180314
  16. OXAZEPAM. [Concomitant]
     Active Substance: OXAZEPAM
     Dosage: DOSE: 15
     Route: 065
     Dates: start: 20180314, end: 20180317
  17. OXAZEPAM. [Concomitant]
     Active Substance: OXAZEPAM
     Dosage: DOSE: 10
     Route: 065
     Dates: start: 20180404, end: 20180411
  18. OXAZEPAM. [Concomitant]
     Active Substance: OXAZEPAM
     Dosage: DOSE: 7.5-5
     Route: 065
     Dates: start: 20180412, end: 20180422

REACTIONS (1)
  - Camptocormia [Recovering/Resolving]

NARRATIVE: CASE EVENT DATE: 20180331
